FAERS Safety Report 16626082 (Version 3)
Quarter: 2019Q3

REPORT INFORMATION
  Report Type: Spontaneous
  Country: US (occurrence: US)
  Receive Date: 20190724
  Receipt Date: 20190917
  Transmission Date: 20191004
  Serious: Yes (Death, Hospitalization, Disabling, Other)
  Sender: FDA-Public Use
  Company Number: US-009507513-1907USA013427

PATIENT
  Sex: Male
  Weight: 72.56 kg

DRUGS (2)
  1. JANUVIA [Suspect]
     Active Substance: SITAGLIPTIN PHOSPHATE
     Dosage: 100 MG, ONCE DAILY
     Route: 048
     Dates: start: 201502, end: 201810
  2. VICTOZA [Suspect]
     Active Substance: LIRAGLUTIDE
     Dosage: 18MG/ 3 ML PEN, ONCE DAILY
     Dates: start: 201706, end: 201807

REACTIONS (8)
  - Pancreatic carcinoma metastatic [Fatal]
  - Metastases to liver [Unknown]
  - Pancreatitis acute [Unknown]
  - Metastases to lymph nodes [Unknown]
  - Oxygen saturation decreased [Unknown]
  - Lipase increased [Unknown]
  - Pulmonary mass [Unknown]
  - Hepatic enzyme increased [Unknown]

NARRATIVE: CASE EVENT DATE: 2018
